FAERS Safety Report 6005051-1 (Version None)
Quarter: 2008Q4

REPORT INFORMATION
  Report Type: 
  Country: None (occurrence: None)
  Receive Date: 20081216
  Receipt Date: 20081208
  Transmission Date: 20090506
  Serious: Yes (Hospitalization)
  Sender: FDA-Public Use
  Company Number: PHHY2008FR31513

PATIENT
  Sex: Male

DRUGS (3)
  1. TRILEPTAL [Suspect]
     Indication: EPILEPSY
     Dosage: 300 MG, BID
     Route: 048
     Dates: start: 20081101
  2. TRILEPTAL [Suspect]
     Dosage: 300 MG, TID
     Route: 048
     Dates: end: 20081112
  3. RED BLOOD CELLS [Concomitant]

REACTIONS (4)
  - ATRIOVENTRICULAR BLOCK FIRST DEGREE [None]
  - ATRIOVENTRICULAR BLOCK SECOND DEGREE [None]
  - CONDUCTION DISORDER [None]
  - CONTINUOUS HAEMODIAFILTRATION [None]
